FAERS Safety Report 7826908-2 (Version None)
Quarter: 2011Q4

REPORT INFORMATION
  Report Type: 
  Country: None (occurrence: None)
  Receive Date: 20111018
  Receipt Date: 20110930
  Transmission Date: 20120403
  Serious: Yes (Other)
  Sender: FDA-Public Use
  Company Number: NSR_00286_2011

PATIENT
  Age: 32 Year
  Sex: Male

DRUGS (5)
  1. CLONAZEPAM [Concomitant]
  2. OLANZAPINE [Concomitant]
  3. VENLAFAXINE [Suspect]
     Indication: SOCIAL PHOBIA
     Dosage: 75 MG, 150 MG, 75 MG, 150 MG
  4. VENLAFAXINE [Suspect]
     Indication: SOCIAL PHOBIA
     Dosage: 75 MG, 150 MG, 75 MG, 150 MG
  5. ESCITALOPRAM [Concomitant]

REACTIONS (4)
  - TENSION [None]
  - FEAR [None]
  - DELUSION OF REFERENCE [None]
  - PERSECUTORY DELUSION [None]
